FAERS Safety Report 4563669-7 (Version None)
Quarter: 2005Q1

REPORT INFORMATION
  Report Type: 
  Country: None (occurrence: None)
  Receive Date: 20050124
  Receipt Date: 20041130
  Transmission Date: 20050727
  Serious: Yes (Life-Threatening, Hospitalization, Disabling)
  Sender: FDA-Public Use
  Company Number: 2003PK01435

PATIENT
  Age: 69 Year
  Sex: Male

DRUGS (19)
  1. IRESSA [Suspect]
     Indication: COLORECTAL CANCER
     Dosage: 250 MG DAILY PO
     Route: 048
     Dates: start: 20030716, end: 20030815
  2. IRINOTECAN HCL [Suspect]
     Indication: COLORECTAL CANCER
     Dosage: 113 MG IV
     Route: 042
     Dates: start: 20030722, end: 20030722
  3. FLUOROURACIL [Suspect]
     Indication: COLORECTAL CANCER
     Dosage: 3000 MG IV
     Route: 042
     Dates: start: 20030812, end: 20030812
  4. VERGENTAN [Concomitant]
  5. NAVOBAN [Concomitant]
  6. ATROPINE [Concomitant]
  7. PANTOZOLE [Concomitant]
  8. VIANI [Concomitant]
  9. TRIAMPUR COMPOSITUM [Concomitant]
  10. PROSTAGUTT FORTE [Concomitant]
  11. NOVALGIN [Concomitant]
  12. IMODIUM [Concomitant]
  13. FOLINIC ACID [Concomitant]
  14. IRINOTECAN HCL [Suspect]
     Indication: COLORECTAL CANCER
     Dosage: 113 MG IV
     Route: 042
     Dates: start: 20030729, end: 20030729
  15. IRINOTECAN HCL [Suspect]
     Indication: COLORECTAL CANCER
     Dosage: 113 MG IV
     Dates: start: 20030805, end: 20030805
  16. IRINOTECAN HCL [Suspect]
     Indication: COLORECTAL CANCER
     Dosage: 113 MG IV
     Route: 042
     Dates: start: 20030812, end: 20030812
  17. FLUOROURACIL [Suspect]
     Indication: COLORECTAL CANCER
     Dosage: 3000 MG IV
     Route: 042
     Dates: start: 20030805, end: 20030805
  18. FLUOROURACIL [Suspect]
     Indication: COLORECTAL CANCER
     Dosage: 3000 MG IV
     Route: 042
     Dates: start: 20030812, end: 20030812
  19. FLUOROURACIL [Suspect]
     Indication: COLORECTAL CANCER
     Dosage: 3000 MG IV
     Route: 042
     Dates: start: 20030722, end: 20030722

REACTIONS (5)
  - APHASIA [None]
  - CONFUSIONAL STATE [None]
  - DISORIENTATION [None]
  - PSYCHOTIC DISORDER [None]
  - VERTIGO [None]
